FAERS Safety Report 7486979-2 (Version None)
Quarter: 2011Q2

REPORT INFORMATION
  Report Type: 
  Country: None (occurrence: None)
  Receive Date: 20110517
  Receipt Date: 20110504
  Transmission Date: 20111010
  Serious: Yes (Death, Hospitalization, Other)
  Sender: FDA-Public Use
  Company Number: US-ELI_LILLY_AND_COMPANY-US201103005047

PATIENT
  Sex: Male
  Weight: 67.12 kg

DRUGS (11)
  1. OXYGEN [Concomitant]
  2. CELEXA [Concomitant]
     Dosage: 20 MG, QD
  3. ASPIRIN [Concomitant]
     Dosage: 81 MG, QD
  4. LISINOPRIL [Concomitant]
     Dosage: 20 MG, QD
  5. HYDROCHLOROTHIAZIDE [Concomitant]
     Dosage: 25 MG, QD
  6. THEO-24 [Concomitant]
     Dosage: 200 MG, QD
  7. DOXAZOSIN MESYLATE [Concomitant]
     Dosage: 8 MG, QD
  8. ZYRTEC [Concomitant]
     Dosage: 10 MG, QD
  9. ALBUTEROL [Concomitant]
     Indication: CHRONIC OBSTRUCTIVE PULMONARY DISEASE
  10. FAMOTIDINE [Concomitant]
     Dosage: UNK, BID
  11. FORTEO [Suspect]
     Indication: OSTEOPOROSIS
     Dosage: 20 UG, DAILY (1/D)
     Route: 058
     Dates: start: 20090401, end: 20110201

REACTIONS (4)
  - CLOSTRIDIUM DIFFICILE COLITIS [None]
  - FALL [None]
  - LIMB INJURY [None]
  - CELLULITIS [None]
